FAERS Safety Report 6052623-4 (Version None)
Quarter: 2009Q1

REPORT INFORMATION
  Report Type: 
  Country: None (occurrence: None)
  Receive Date: 20090127
  Receipt Date: 20090122
  Transmission Date: 20090719
  Serious: Yes (Hospitalization)
  Sender: FDA-Public Use
  Company Number: US-ASTRAZENECA-2009UW01903

PATIENT
  Age: 40 Year
  Sex: Male

DRUGS (12)
  1. CRESTOR [Suspect]
     Indication: BLOOD CHOLESTEROL INCREASED
     Route: 048
     Dates: start: 20080101
  2. DYAZIDE [Concomitant]
  3. COREG [Concomitant]
  4. METFORMIN HCL [Concomitant]
     Indication: DIABETES MELLITUS
  5. SKELAXIN [Concomitant]
  6. TRAMADOL HCL [Concomitant]
  7. ALLOPURINOL [Concomitant]
  8. ATIVAN [Concomitant]
  9. CELEXA [Concomitant]
  10. ADVAIR DISKUS 100/50 [Concomitant]
     Indication: ASTHMA
  11. ALBUTEROL [Concomitant]
     Indication: ASTHMA
  12. SINGULAIR [Concomitant]
     Indication: ASTHMA

REACTIONS (3)
  - ANGIOPLASTY [None]
  - MYOCARDIAL INFARCTION [None]
  - STENT PLACEMENT [None]
